FAERS Safety Report 19747130 (Version 1)
Quarter: 2021Q3

REPORT INFORMATION
  Report Type: Report from Study
  Country: None (occurrence: US)
  Receive Date: 20210826
  Receipt Date: 20210826
  Transmission Date: 20211014
  Serious: Yes (Hospitalization, Other)
  Sender: FDA-Public Use
  Company Number: US-ABBVIE-21K-163-4050253-00

PATIENT
  Sex: Female

DRUGS (3)
  1. HUMIRA [Suspect]
     Active Substance: ADALIMUMAB
     Indication: SPONDYLITIS
     Route: 058
     Dates: start: 201901, end: 2020
  2. HUMIRA [Suspect]
     Active Substance: ADALIMUMAB
     Indication: RHEUMATOID ARTHRITIS
     Route: 058
     Dates: start: 202103
  3. HUMIRA [Suspect]
     Active Substance: ADALIMUMAB
     Indication: COLITIS

REACTIONS (17)
  - Platelet count decreased [Unknown]
  - Blood uric acid increased [Unknown]
  - Nasal congestion [Unknown]
  - Pain [Unknown]
  - Injection site reaction [Unknown]
  - Lymphoma [Unknown]
  - Hydronephrosis [Unknown]
  - Fatigue [Unknown]
  - Blood iron decreased [Unknown]
  - Contusion [Unknown]
  - Insomnia [Recovering/Resolving]
  - Nephrolithiasis [Unknown]
  - Congenital cystic kidney disease [Unknown]
  - Arthralgia [Recovering/Resolving]
  - Blood count abnormal [Unknown]
  - COVID-19 pneumonia [Unknown]
  - Bone pain [Recovering/Resolving]

NARRATIVE: CASE EVENT DATE: 2020
